FAERS Safety Report 11430256 (Version 1)
Quarter: 2015Q3

REPORT INFORMATION
  Report Type: Spontaneous
  Country: US (occurrence: US)
  Receive Date: 20150828
  Receipt Date: 20150828
  Transmission Date: 20151125
  Serious: No
  Sender: FDA-Public Use
  Company Number: PHEH2015US007009

PATIENT
  Age: 65 Year
  Sex: Female

DRUGS (2)
  1. RECLAST [Suspect]
     Active Substance: ZOLEDRONIC ACID
     Indication: BONE DENSITY ABNORMAL
     Dosage: UNK
     Route: 042
     Dates: start: 20121011
  2. FORTEO [Concomitant]
     Active Substance: TERIPARATIDE
     Indication: BONE DENSITY ABNORMAL
     Dosage: UNK OT, QD
     Route: 065

REACTIONS (8)
  - Dysphagia [Unknown]
  - Migraine [Unknown]
  - Dizziness [Unknown]
  - Bone pain [Unknown]
  - Gastrointestinal pain [Unknown]
  - Headache [Unknown]
  - Myalgia [Unknown]
  - Chest pain [Unknown]

NARRATIVE: CASE EVENT DATE: 20121011
